FAERS Safety Report 25078011 (Version 1)
Quarter: 2025Q1

REPORT INFORMATION
  Report Type: Other
  Country: US (occurrence: US)
  Receive Date: 20250314
  Receipt Date: 20250314
  Transmission Date: 20250408
  Serious: Yes (Hospitalization, Other)
  Sender: ANI
  Company Number: US-ANIPHARMA-015909

PATIENT
  Age: 3 Year
  Sex: Female

DRUGS (2)
  1. CYCLOPHOSPHAMIDE [Suspect]
     Active Substance: CYCLOPHOSPHAMIDE
     Indication: Neuroblastoma
  2. TOPOTECAN [Concomitant]
     Active Substance: TOPOTECAN HYDROCHLORIDE
     Indication: Neuroblastoma

REACTIONS (2)
  - Mucosal inflammation [Recovering/Resolving]
  - Oesophageal stenosis [Recovering/Resolving]
